FAERS Safety Report 9100269 (Version 4)
Quarter: 2014Q1

REPORT INFORMATION
  Report Type: Spontaneous
  Country: US (occurrence: US)
  Receive Date: 20130215
  Receipt Date: 20140206
  Transmission Date: 20141002
  Serious: No
  Sender: FDA-Public Use
  Company Number: US-009507513-1302USA006824

PATIENT
  Age: 51 Year
  Sex: Male
  Weight: 80.73 kg

DRUGS (4)
  1. PEGINTRON [Suspect]
     Indication: HEPATITIS C
     Dosage: STRENGTH: 120MG/0.5CC; DOSE:0.4CC, ONCE A WEEK
     Route: 058
     Dates: start: 20130207
  2. VICTRELIS [Suspect]
     Indication: HEPATITIS C
     Dosage: UNK, Q8H
     Route: 048
     Dates: start: 20130212
  3. REBETOL [Suspect]
     Indication: HEPATITIS C
     Dosage: 4 CAPSULES AM AND PM
     Route: 048
     Dates: start: 20130207
  4. REBETOL [Suspect]
     Dosage: 2 CAPSULES AM AND PM
     Route: 048
     Dates: end: 20140110

REACTIONS (17)
  - Chromaturia [Unknown]
  - Fungal infection [Unknown]
  - Somnolence [Unknown]
  - Haemoglobin decreased [Unknown]
  - Fatigue [Unknown]
  - Vomiting [Unknown]
  - Rash [Unknown]
  - Nausea [Unknown]
  - Vomiting [Unknown]
  - Weight decreased [Unknown]
  - Influenza like illness [Unknown]
  - Vomiting [Unknown]
  - Thyroid disorder [Recovering/Resolving]
  - Skin disorder [Recovering/Resolving]
  - Influenza [Recovering/Resolving]
  - Abdominal distension [Recovering/Resolving]
  - White blood cell count decreased [Unknown]
